FAERS Safety Report 10080462 (Version 1)
Quarter: 2014Q2

REPORT INFORMATION
  Report Type: Spontaneous
  Country: US (occurrence: US)
  Receive Date: 20140416
  Receipt Date: 20140416
  Transmission Date: 20141212
  Serious: No
  Sender: FDA-Public Use
  Company Number: US-B.I. PHARMACEUTICALS,INC./RIDGEFIELD-2014-BI-15473BP

PATIENT
  Sex: Female

DRUGS (11)
  1. PRADAXA [Suspect]
     Indication: ATRIAL FIBRILLATION
     Dosage: 300 MG
     Route: 048
  2. CO Q10 [Concomitant]
     Dosage: 200 MG
     Route: 065
  3. VITAMION B12 [Concomitant]
     Dosage: 1000 MG
     Route: 065
  4. WOMEN^S MULTIVITAMIN [Concomitant]
     Route: 065
  5. DIGOXIN [Concomitant]
     Dosage: 250 MCG
     Route: 065
  6. VITAMIN C [Concomitant]
     Dosage: 1000 MCG
     Route: 065
  7. METOPROLOL ER [Concomitant]
     Dosage: 25 MG
     Route: 065
  8. CITALOPRAM [Concomitant]
     Dosage: 40 MG
     Route: 065
  9. METFORMIN [Concomitant]
     Dosage: 1000 MG
     Route: 065
  10. ATORVASTATIN [Concomitant]
     Dosage: 10 MG
     Route: 065
  11. OXYBUTYNIN [Concomitant]
     Dosage: 5 MG
     Route: 065

REACTIONS (2)
  - Dyspepsia [Unknown]
  - Underdose [Unknown]
